FAERS Safety Report 22267900 (Version 1)
Quarter: 2023Q2

REPORT INFORMATION
  Report Type: Report from Study
  Country: NL (occurrence: NL)
  Receive Date: 20230430
  Receipt Date: 20230430
  Transmission Date: 20230722
  Serious: Yes (Other)
  Sender: FDA-Public Use
  Company Number: NL-002147023-NVSC2023NL096776

PATIENT
  Age: 78 Year
  Sex: Male

DRUGS (2)
  1. ILARIS [Suspect]
     Active Substance: CANAKINUMAB
     Indication: Cryopyrin associated periodic syndrome
     Dosage: 1 DOSAGE FORM, Q2W
     Route: 058
     Dates: start: 20210621
  2. ILARIS [Suspect]
     Active Substance: CANAKINUMAB
     Dosage: UNK
     Route: 058
     Dates: start: 20230411

REACTIONS (5)
  - Loss of consciousness [Not Recovered/Not Resolved]
  - Haemorrhage [Unknown]
  - Fall [Unknown]
  - Insomnia [Unknown]
  - Cyanosis [Unknown]

NARRATIVE: CASE EVENT DATE: 20230422
